FAERS Safety Report 5480436-0 (Version None)
Quarter: 2007Q4

REPORT INFORMATION
  Report Type: 
  Country: None (occurrence: None)
  Receive Date: 20071009
  Receipt Date: 20071003
  Transmission Date: 20080405
  Serious: Yes (Hospitalization)
  Sender: FDA-Public Use
  Company Number: A0685920A

PATIENT
  Age: 70 Year
  Sex: Male

DRUGS (3)
  1. AVANDAMET [Suspect]
     Route: 048
     Dates: end: 20070901
  2. AVANDIA [Suspect]
     Route: 048
  3. STARLIX [Concomitant]

REACTIONS (2)
  - ARRHYTHMIA [None]
  - ASTHENIA [None]
